FAERS Safety Report 17042633 (Version 1)
Quarter: 2019Q4

REPORT INFORMATION
  Report Type: Spontaneous
  Country: CA (occurrence: CA)
  Receive Date: 20191118
  Receipt Date: 20191118
  Transmission Date: 20200122
  Serious: Yes (Hospitalization, Other)
  Sender: FDA-Public Use
  Company Number: CA-009507513-1911CAN006311

PATIENT
  Age: 61 Year
  Sex: Male

DRUGS (3)
  1. CUBICIN [Suspect]
     Active Substance: DAPTOMYCIN
     Indication: WOUND INFECTION STAPHYLOCOCCAL
     Route: 042
  2. ROSUVASTATIN. [Concomitant]
     Active Substance: ROSUVASTATIN
     Route: 065
  3. CUBICIN [Suspect]
     Active Substance: DAPTOMYCIN
     Indication: POSTOPERATIVE WOUND INFECTION

REACTIONS (4)
  - Myalgia [Recovering/Resolving]
  - Blood creatine phosphokinase increased [Recovering/Resolving]
  - Peripheral swelling [Recovering/Resolving]
  - Erythema [Recovering/Resolving]
